FAERS Safety Report 4829196-4 (Version None)
Quarter: 2005Q4

REPORT INFORMATION
  Report Type: 
  Country: None (occurrence: None)
  Receive Date: 20051116
  Receipt Date: 20051017
  Transmission Date: 20060501
  Serious: Yes (Other)
  Sender: FDA-Public Use
  Company Number: PHEH2005US11566

PATIENT
  Age: 80 Year
  Sex: Female
  Weight: 59 kg

DRUGS (11)
  1. PLAVIX [Concomitant]
  2. TOPROL-XL [Concomitant]
  3. DYAZIDE [Concomitant]
  4. FOSAMAX [Concomitant]
  5. M.V.I. [Concomitant]
  6. CALCIUM WITH VITAMIN D [Concomitant]
  7. POTASSIUM CHLORIDE [Concomitant]
  8. ESTER-C [Concomitant]
  9. GLUCOSAMINE [Concomitant]
  10. FISH OIL [Concomitant]
  11. LAMISIL [Suspect]
     Indication: NAIL TINEA
     Dosage: 250 MG, QD
     Route: 048
     Dates: start: 20050624, end: 20050901

REACTIONS (3)
  - BLOODY DISCHARGE [None]
  - BREAST DISCHARGE [None]
  - FIBROADENOMA OF BREAST [None]
